FAERS Safety Report 8876672 (Version 5)
Quarter: 2013Q4

REPORT INFORMATION
  Report Type: Report from Study
  Country: FR (occurrence: FR)
  Receive Date: 20121030
  Receipt Date: 20131119
  Transmission Date: 20140711
  Serious: Yes (Other)
  Sender: FDA-Public Use
  Company Number: FR-ROCHE-1148674

PATIENT
  Sex: Female

DRUGS (2)
  1. TRASTUZUMAB [Suspect]
     Indication: BREAST CANCER
     Dosage: FIRST INFUSION, LOADING DOSE
     Route: 042
  2. TRASTUZUMAB [Suspect]
     Route: 042

REACTIONS (6)
  - Oesophagitis [Unknown]
  - Dermatitis [Unknown]
  - Cardiac failure congestive [Unknown]
  - Left ventricular dysfunction [Unknown]
  - Breast pain [Unknown]
  - Ejection fraction abnormal [Unknown]
